FAERS Safety Report 8808841 (Version 1)
Quarter: 2012Q4

REPORT INFORMATION
  Report Type: Spontaneous
  Country: FR (occurrence: None)
  Receive Date: 20120920
  Receipt Date: 20120920
  Transmission Date: 20130627
  Serious: Yes (Hospitalization)
  Sender: FDA-Public Use
  Company Number: FK201202680

PATIENT
  Age: 30 Year
  Sex: Female

DRUGS (3)
  1. ROPIVACAINE HYDROCHLORIDE [Suspect]
     Route: 042
     Dates: start: 20120809, end: 20120809
  2. XYLOCAINE [Suspect]
  3. SUFENTANIL [Suspect]

REACTIONS (5)
  - Paraesthesia oral [None]
  - Paraesthesia [None]
  - Urticaria [None]
  - Tachycardia [None]
  - Hypotension [None]
